FAERS Safety Report 7954290-9 (Version None)
Quarter: 2011Q4

REPORT INFORMATION
  Report Type: 
  Country: None (occurrence: None)
  Receive Date: 20111202
  Receipt Date: 20111129
  Transmission Date: 20120403
  Serious: No
  Sender: FDA-Public Use
  Company Number: US-PFIZER INC-2011291061

PATIENT
  Sex: Female

DRUGS (2)
  1. BUTALBITAL ACETAMINOPHEN AND CAFFEINE [Suspect]
     Indication: MIGRAINE
  2. IBUPROFEN [Suspect]
     Dosage: 800 MG, UNK

REACTIONS (2)
  - DRUG INEFFECTIVE [None]
  - PALPITATIONS [None]
